FAERS Safety Report 6710319-7 (Version None)
Quarter: 2010Q2

REPORT INFORMATION
  Report Type: 
  Country: None (occurrence: None)
  Receive Date: 20100430
  Receipt Date: 20100415
  Transmission Date: 20101027
  Serious: Yes (Other)
  Sender: FDA-Public Use
  Company Number: 1-22271791

PATIENT
  Sex: Female

DRUGS (3)
  1. MEDROXYPROGESTERONE [Suspect]
     Indication: MENOPAUSAL SYMPTOMS
     Dosage: ORAL, LATE 1980S TO 12/1999
     Route: 048
     Dates: end: 19991201
  2. LOESTRIN 1.5/30 [Suspect]
     Indication: MENOPAUSAL SYMPTOMS
     Dosage: ORAL, LATE 1980S TO 12/1999
     Route: 048
     Dates: end: 19991201
  3. PROVERA [Suspect]
     Indication: MENOPAUSAL SYMPTOMS
     Dosage: ORAL, LATE 1980S TO 12/1999
     Route: 048
     Dates: end: 19991201

REACTIONS (10)
  - ANXIETY [None]
  - BREAST CANCER [None]
  - BREAST CANCER IN SITU [None]
  - DEFORMITY [None]
  - EMOTIONAL DISORDER [None]
  - MENTAL DISORDER [None]
  - MULTIPLE INJURIES [None]
  - OESTROGEN RECEPTOR ASSAY POSITIVE [None]
  - PAIN [None]
  - PROGESTERONE RECEPTOR ASSAY POSITIVE [None]
